FAERS Safety Report 23701282 (Version 1)
Quarter: 2024Q2

REPORT INFORMATION
  Report Type: Spontaneous
  Country: US (occurrence: None)
  Receive Date: 20240402
  Receipt Date: 20240402
  Transmission Date: 20240716
  Serious: Yes (Hospitalization)
  Sender: FDA-Public Use
  Company Number: None

PATIENT
  Age: 21 Year
  Sex: Female
  Weight: 49.5 kg

DRUGS (4)
  1. ARIPIPRAZOLE LAUROXIL [Suspect]
     Active Substance: ARIPIPRAZOLE LAUROXIL
     Indication: Sexual abuse
     Dates: start: 20240304
  2. ATARAX [Suspect]
     Active Substance: HYDROXYZINE HYDROCHLORIDE
  3. REMERON [Suspect]
     Active Substance: MIRTAZAPINE
  4. ARIPIPRAZOLE LAUROXIL [Suspect]
     Active Substance: ARIPIPRAZOLE LAUROXIL
     Indication: Substance abuse

REACTIONS (3)
  - Tachycardia [None]
  - Delusion [None]
  - Psychotic disorder [None]

NARRATIVE: CASE EVENT DATE: 20240328
